FAERS Safety Report 11568286 (Version 1)
Quarter: 2015Q3

REPORT INFORMATION
  Report Type: Spontaneous
  Country: US (occurrence: US)
  Receive Date: 20150929
  Receipt Date: 20150929
  Transmission Date: 20151125
  Serious: No
  Sender: FDA-Public Use
  Company Number: US-009507513-1509USA013981

PATIENT
  Sex: Female

DRUGS (1)
  1. NEXPLANON [Suspect]
     Active Substance: ETONOGESTREL
     Indication: CONTRACEPTION
     Dosage: 1 DF, 1 SINGLE ROD
     Dates: start: 20150313, end: 20150316

REACTIONS (3)
  - Hypoaesthesia [Unknown]
  - Paraesthesia [Unknown]
  - Furuncle [Unknown]

NARRATIVE: CASE EVENT DATE: 20150313
